FAERS Safety Report 21844376 (Version 1)
Quarter: 2023Q1

REPORT INFORMATION
  Report Type: Spontaneous
  Country: US (occurrence: None)
  Receive Date: 20230110
  Receipt Date: 20230110
  Transmission Date: 20230417
  Serious: Yes (Other)
  Sender: FDA-Public Use
  Company Number: None

PATIENT
  Age: 64 Year
  Sex: Female
  Weight: 69.75 kg

DRUGS (9)
  1. NUZYRA [Suspect]
     Active Substance: OMADACYCLINE
     Indication: Post procedural infection
     Route: 048
     Dates: start: 20221216, end: 20221231
  2. NUZYRA [Suspect]
     Active Substance: OMADACYCLINE
     Indication: Infection prophylaxis
  3. TELMISARTAN [Concomitant]
     Active Substance: TELMISARTAN
  4. VITAMIN D NOS [Concomitant]
     Active Substance: VITAMIN D NOS
  5. ASPIRIN [Concomitant]
     Active Substance: ASPIRIN
  6. CALCIUM [Concomitant]
     Active Substance: CALCIUM
  7. Strontium (Alpacal) [Concomitant]
  8. VITAMIN B COMPLEX [Concomitant]
     Active Substance: CYANOCOBALAMIN\DEXPANTHENOL\NIACINAMIDE\PYRIDOXINE HYDROCHLORIDE\RIBOFLAVIN 5^-PHOSPHATE SODIUM\THIA
  9. VITAMIN B12 [Concomitant]
     Active Substance: CYANOCOBALAMIN

REACTIONS (2)
  - Gastrointestinal pain [None]
  - Nausea [None]

NARRATIVE: CASE EVENT DATE: 20221216
